FAERS Safety Report 19948205 (Version 1)
Quarter: 2021Q4

REPORT INFORMATION
  Report Type: Spontaneous
  Country: US (occurrence: US)
  Receive Date: 20211012
  Receipt Date: 20211012
  Transmission Date: 20220303
  Serious: No
  Sender: FDA-Public Use
  Company Number: US-SUNOVION-2021SUN003853

PATIENT
  Sex: Female

DRUGS (3)
  1. BROVANA [Suspect]
     Active Substance: ARFORMOTEROL TARTRATE
     Indication: Chronic obstructive pulmonary disease
     Dosage: UNK, BID
     Route: 055
  2. BROVANA [Suspect]
     Active Substance: ARFORMOTEROL TARTRATE
     Dosage: UNK, BID
     Route: 055
  3. BROVANA [Suspect]
     Active Substance: ARFORMOTEROL TARTRATE
     Dosage: UNK, BID
     Route: 055

REACTIONS (2)
  - Therapeutic response decreased [Unknown]
  - Extra dose administered [Unknown]
